FAERS Safety Report 4742477-8 (Version None)
Quarter: 2005Q3

REPORT INFORMATION
  Report Type: 
  Country: None (occurrence: None)
  Receive Date: 20050811
  Receipt Date: 20050802
  Transmission Date: 20060218
  Serious: Yes (Hospitalization)
  Sender: FDA-Public Use
  Company Number: US-AMGEN-US144116

PATIENT
  Sex: Female

DRUGS (11)
  1. EPOGEN [Suspect]
     Indication: DIALYSIS
     Route: 058
     Dates: start: 19990101
  2. FOSRENOL [Concomitant]
     Dates: start: 20050321
  3. IMIPRAMINE [Concomitant]
     Dates: start: 20040621
  4. LISINOPRIL [Concomitant]
     Dates: start: 20050516
  5. NORVASC [Concomitant]
     Dates: start: 20040416
  6. PHENYTOIN [Concomitant]
     Dates: start: 20040223
  7. PRILOSEC [Concomitant]
     Dates: start: 20041204
  8. SENSIPAR [Concomitant]
     Indication: HYPERPARATHYROIDISM SECONDARY
     Dates: start: 20040720
  9. LABETALOL [Concomitant]
     Dates: start: 20041214
  10. TEMAZEPAM [Concomitant]
     Dates: start: 20050516
  11. LORAZEPAM [Concomitant]
     Dates: start: 20050614

REACTIONS (6)
  - ABDOMINAL PAIN [None]
  - DEVICE FAILURE [None]
  - HAEMODIALYSIS [None]
  - HYPERKALAEMIA [None]
  - INFLAMMATION [None]
  - THERAPEUTIC RESPONSE DECREASED [None]
